FAERS Safety Report 19101513 (Version 1)
Quarter: 2021Q2

REPORT INFORMATION
  Report Type: Spontaneous
  Country: US (occurrence: US)
  Receive Date: 20210406
  Receipt Date: 20210406
  Transmission Date: 20210717
  Serious: Yes (Other)
  Sender: FDA-Public Use
  Company Number: None

PATIENT
  Age: 33 Year
  Sex: Female
  Weight: 71.1 kg

DRUGS (1)
  1. TIROSINT [Suspect]
     Active Substance: LEVOTHYROXINE SODIUM
     Indication: THYROID CANCER
     Dosage: ?          QUANTITY:1 DROP(S);?
     Route: 060
     Dates: start: 20210320

REACTIONS (4)
  - Swelling face [None]
  - Muscle spasms [None]
  - Contusion [None]
  - Vein rupture [None]

NARRATIVE: CASE EVENT DATE: 20210404
